FAERS Safety Report 5563073-9 (Version None)
Quarter: 2007Q4

REPORT INFORMATION
  Report Type: 
  Country: None (occurrence: None)
  Receive Date: 20071217
  Receipt Date: 20071207
  Transmission Date: 20080405
  Serious: Yes (Hospitalization)
  Sender: FDA-Public Use
  Company Number: A0698413A

PATIENT
  Age: 56 Year
  Sex: Female
  Weight: 56.2 kg

DRUGS (4)
  1. LAPATINIB [Suspect]
     Dosage: 1500MG PER DAY
     Route: 048
     Dates: start: 20070822
  2. BEVACIZUMAB [Suspect]
     Dosage: 10MGK CYCLIC
     Route: 042
     Dates: start: 20070822
  3. FERRLECIT [Concomitant]
     Dosage: 125MG WEEKLY
     Route: 042
     Dates: start: 20071129, end: 20071129
  4. ARANESP [Concomitant]

REACTIONS (3)
  - ABDOMINAL PAIN UPPER [None]
  - DECREASED APPETITE [None]
  - FATIGUE [None]
